FAERS Safety Report 6071956-9 (Version None)
Quarter: 2009Q1

REPORT INFORMATION
  Report Type: 
  Country: None (occurrence: None)
  Receive Date: 20090205
  Receipt Date: 20090205
  Transmission Date: 20090719
  Serious: Yes (Death)
  Sender: FDA-Public Use
  Company Number: None

PATIENT
  Age: 58 Year
  Sex: Female
  Weight: 57.1532 kg

DRUGS (2)
  1. ADDERALL 20 [Suspect]
     Indication: ATTENTION DEFICIT/HYPERACTIVITY DISORDER
     Dosage: 20 MG DAILY PO
     Route: 048
     Dates: start: 20060724, end: 20080716
  2. LISINOPRIL [Concomitant]

REACTIONS (1)
  - MITRAL VALVE DISEASE [None]
